FAERS Safety Report 9969973 (Version 1)
Quarter: 2014Q1

REPORT INFORMATION
  Report Type: Spontaneous
  Country: US (occurrence: None)
  Receive Date: 20140131
  Receipt Date: 20140131
  Transmission Date: 20141002
  Serious: Yes (Other)
  Sender: FDA-Public Use
  Company Number: 073301

PATIENT
  Age: 66 Year
  Sex: 0

DRUGS (1)
  1. KEPPRA [Suspect]
     Indication: CONVULSION
     Dosage: 1 GRAM IN AM, 750 MG IN AFTERNOON, 1 GRAM AT NIGHT

REACTIONS (1)
  - Pancreatitis [None]
